FAERS Safety Report 6383561-5 (Version None)
Quarter: 2009Q3

REPORT INFORMATION
  Report Type: 
  Country: None (occurrence: None)
  Receive Date: 20090928
  Receipt Date: 20090908
  Transmission Date: 20100115
  Serious: Yes (Hospitalization, Other)
  Sender: FDA-Public Use
  Company Number: AUR-APL-2009-00637

PATIENT
  Age: 18 Year
  Sex: Male

DRUGS (6)
  1. METOPROLOL [Suspect]
     Indication: HYPERTENSION
     Dosage: 200 MG, DAILY, UNK
  2. LISINOPRIL [Suspect]
     Indication: HYPERTENSION
     Dosage: 10MG, DAILY, UNK
  3. NITRENDIPINE [Suspect]
     Indication: HYPERTENSION
     Dosage: 20-40MG - DAILY - UNK
  4. PERINDOPRIL [Suspect]
     Indication: HYPERTENSION
     Dosage: 4MG - DAILY - UNK
  5. PRAZSOIN HCL [Suspect]
     Indication: HYPERTENSION
     Dosage: 6-15MG - DAILY - UNK
  6. FUROSEMIDE [Suspect]
     Indication: HYPERTENSION
     Dosage: 40MG - DAILY - UNK

REACTIONS (10)
  - BLOOD CHOLESTEROL INCREASED [None]
  - BLOOD PRESSURE INADEQUATELY CONTROLLED [None]
  - BLOOD TRIGLYCERIDES INCREASED [None]
  - BLOOD URIC ACID INCREASED [None]
  - HAEMODIALYSIS [None]
  - HYPERTENSIVE NEPHROPATHY [None]
  - LEFT VENTRICULAR HYPERTROPHY [None]
  - RENAL ANEURYSM [None]
  - RENAL ARTERY STENOSIS [None]
  - RENAL FAILURE ACUTE [None]
